FAERS Safety Report 6131232-2 (Version None)
Quarter: 2009Q1

REPORT INFORMATION
  Report Type: 
  Country: None (occurrence: None)
  Receive Date: 20090325
  Receipt Date: 20080206
  Transmission Date: 20090719
  Serious: Yes (Life-Threatening, Hospitalization)
  Sender: FDA-Public Use
  Company Number: US-BRISTOL-MYERS SQUIBB COMPANY-14029524

PATIENT
  Age: 60 Year
  Sex: Male

DRUGS (6)
  1. ERBITUX [Suspect]
     Indication: HEAD AND NECK CANCER
     Dosage: LOADING DOSE 692 MG. DURATION:INFUSED FOR 7 MINS, RECEIVED TOTAL OF 36 ML
     Route: 042
     Dates: start: 20080102, end: 20080102
  2. BENADRYL [Concomitant]
     Indication: PREMEDICATION
     Dosage: 30 MINUTES PRIOR TO START OF TREATMENT
     Route: 042
  3. DECADRON [Concomitant]
     Indication: PREMEDICATION
     Dosage: 30 MINUTES PRIOR TO START OF TREATMENT
     Route: 042
  4. ZANTAC [Concomitant]
     Indication: PREMEDICATION
     Dosage: 30 MINUTES PRIOR TO START OF TREATMENT
     Route: 042
  5. TYLENOL [Concomitant]
     Indication: PREMEDICATION
  6. KYTRIL [Concomitant]
     Indication: PREMEDICATION

REACTIONS (1)
  - HYPERSENSITIVITY [None]
